FAERS Safety Report 8133304-X (Version None)
Quarter: 2012Q1

REPORT INFORMATION
  Report Type: 
  Country: None (occurrence: None)
  Receive Date: 20120213
  Receipt Date: 20120206
  Transmission Date: 20120608
  Serious: Yes (Life-Threatening, Hospitalization)
  Sender: FDA-Public Use
  Company Number: JP-ABBOTT-11P-087-0868871-00

PATIENT
  Sex: Male
  Weight: 73 kg

DRUGS (1)
  1. HUMIRA [Suspect]
     Indication: RHEUMATOID ARTHRITIS
     Route: 058
     Dates: end: 20110714

REACTIONS (4)
  - ABDOMINAL PAIN [None]
  - DISSEMINATED TUBERCULOSIS [None]
  - MESENTERIC PANNICULITIS [None]
  - ASCITES [None]
